FAERS Safety Report 18948804 (Version 1)
Quarter: 2021Q1

REPORT INFORMATION
  Report Type: Spontaneous
  Country: CN (occurrence: CN)
  Receive Date: 20210227
  Receipt Date: 20210227
  Transmission Date: 20210420
  Serious: Yes (Other)
  Sender: FDA-Public Use
  Company Number: CN-LUPIN PHARMACEUTICALS INC.-2021-02299

PATIENT
  Age: 24 Year
  Sex: Male

DRUGS (4)
  1. DECITABINE. [Suspect]
     Active Substance: DECITABINE
     Indication: ANGIOCENTRIC LYMPHOMA
     Dosage: UNK
     Route: 065
     Dates: start: 202001
  2. SINTILIMAB. [Suspect]
     Active Substance: SINTILIMAB
     Indication: ANGIOCENTRIC LYMPHOMA
     Dosage: 200 MILLIGRAM
     Route: 065
     Dates: start: 202001
  3. CHIDAMIDE [Concomitant]
     Active Substance: TUCIDINOSTAT
     Dosage: 20 MILLIGRAM,IN EVERY 3 DAYS
     Route: 048
     Dates: start: 2020
  4. CHIDAMIDE [Concomitant]
     Active Substance: TUCIDINOSTAT
     Indication: ANGIOCENTRIC LYMPHOMA
     Dosage: 30 MILLIGRAM,IN EVERY 3 DAYS
     Route: 048
     Dates: start: 20200205

REACTIONS (2)
  - Condition aggravated [Recovered/Resolved]
  - Swelling face [Recovered/Resolved]

NARRATIVE: CASE EVENT DATE: 202001
